FAERS Safety Report 8745934 (Version 3)
Quarter: 2012Q4

REPORT INFORMATION
  Report Type: 
  Country: JP (occurrence: JP)
  Receive Date: 20120827
  Receipt Date: 20121126
  Transmission Date: 20130627
  Serious: Yes (Death, Hospitalization)
  Sender: FDA-Public Use
  Company Number: JP-ELI_LILLY_AND_COMPANY-JP201208006594

PATIENT
  Age: 68 Year
  Sex: Male
  Weight: 68.5 kg

DRUGS (7)
  1. ALIMTA [Suspect]
     Indication: NON-SMALL CELL LUNG CANCER STAGE IIIA
     Dosage: 580 mg/m2, UNK
     Route: 042
     Dates: start: 20120608, end: 20120608
  2. DEXART [Concomitant]
     Indication: PROPHYLAXIS
     Dosage: 6.6 mg, UNK
     Route: 042
     Dates: start: 20120608
  3. HYDROXOCOBALAMIN [Concomitant]
     Indication: PROPHYLAXIS
     Dosage: 1000 ug, UNK
     Route: 042
     Dates: start: 20120601
  4. PANVITAN                           /00466101/ [Concomitant]
     Indication: PROPHYLAXIS
     Dosage: 1 g, UNK
     Route: 048
     Dates: start: 20120601
  5. ZOPICLONE [Concomitant]
     Indication: INSOMNIA
     Dosage: 7.5 mg, prn
     Route: 048
  6. MEDICON                            /00048102/ [Concomitant]
     Dosage: 15 mg, 6 times a day
     Route: 048
  7. MUCOSOLVAN [Concomitant]
     Dosage: 15 mg, tid
     Route: 048

REACTIONS (4)
  - Interstitial lung disease [Fatal]
  - Pleural effusion [Unknown]
  - Diarrhoea [Recovered/Resolved]
  - Pyrexia [Not Recovered/Not Resolved]
